FAERS Safety Report 7489087-X (Version None)
Quarter: 2011Q2

REPORT INFORMATION
  Report Type: 
  Country: None (occurrence: None)
  Receive Date: 20110518
  Receipt Date: 20110401
  Transmission Date: 20111010
  Serious: Yes (Other)
  Sender: FDA-Public Use
  Company Number: JP-GILEAD-2010-0034321

PATIENT
  Sex: Male

DRUGS (12)
  1. BAKTAR [Concomitant]
     Indication: HIV INFECTION
  2. ISONIAZID [Concomitant]
     Indication: PRODUCT USED FOR UNKNOWN INDICATION
     Dates: start: 20100303, end: 20101103
  3. ISENTRESS [Suspect]
     Indication: HIV INFECTION
     Route: 048
     Dates: start: 20100225, end: 20100518
  4. FOSAMPRENAVIR [Concomitant]
     Indication: HIV INFECTION
  5. EBUTOL [Concomitant]
     Indication: PRODUCT USED FOR UNKNOWN INDICATION
     Dates: start: 20100303, end: 20101103
  6. TRUVADA [Suspect]
     Indication: HIV INFECTION
     Route: 048
     Dates: start: 20100225, end: 20100518
  7. PYDOXAL [Concomitant]
     Indication: PRODUCT USED FOR UNKNOWN INDICATION
     Dates: start: 20100303, end: 20101103
  8. MYCOBUTIN [Concomitant]
     Indication: TUBERCULOSIS
     Route: 048
     Dates: start: 20100303, end: 20101103
  9. LENDORMIN [Concomitant]
     Indication: PRODUCT USED FOR UNKNOWN INDICATION
     Dates: start: 20100122
  10. TOLEDOMIN [Concomitant]
     Indication: PRODUCT USED FOR UNKNOWN INDICATION
     Dates: start: 20100216
  11. PYRAMIDE [Concomitant]
     Indication: PRODUCT USED FOR UNKNOWN INDICATION
     Dates: start: 20100303, end: 20101103
  12. ZIDOVUDINE [Concomitant]
     Indication: HIV INFECTION

REACTIONS (4)
  - ANXIETY [None]
  - IRRITABILITY [None]
  - HALLUCINATION, AUDITORY [None]
  - DRUG RESISTANCE [None]
